FAERS Safety Report 21957521 (Version 1)
Quarter: 2023Q1

REPORT INFORMATION
  Report Type: Spontaneous
  Country: CN (occurrence: CN)
  Receive Date: 20230206
  Receipt Date: 20230206
  Transmission Date: 20230418
  Serious: Yes (Hospitalization)
  Sender: FDA-Public Use
  Company Number: CN-DGL-000002

PATIENT
  Age: 2 Year
  Sex: Female

DRUGS (9)
  1. NYSTATIN [Suspect]
     Active Substance: NYSTATIN
     Indication: Oral candidiasis
     Route: 065
  2. VORICONAZOLE [Suspect]
     Active Substance: VORICONAZOLE
     Indication: Antifungal treatment
     Route: 065
  3. BICYCLOL [Suspect]
     Active Substance: BICYCLOL
     Indication: Prophylaxis
     Route: 048
  4. GLUTATHIONE [Suspect]
     Active Substance: GLUTATHIONE
     Indication: Prophylaxis
     Route: 048
  5. MAGNESIUM ISOGLYCYRRHIZINATE [Suspect]
     Active Substance: MAGNESIUM ISOGLYCYRRHIZINATE
     Indication: Prophylaxis
     Route: 065
  6. CEFTEZOLE [Suspect]
     Active Substance: CEFTEZOLE
     Indication: Anti-infective therapy
     Route: 065
  7. CEFOPERAZONE [Suspect]
     Active Substance: CEFOPERAZONE
     Indication: Anti-infective therapy
     Route: 065
  8. SULBACTAM SODIUM [Suspect]
     Active Substance: SULBACTAM SODIUM
     Indication: Anti-infective therapy
     Route: 065
  9. GANCICLOVIR [Suspect]
     Active Substance: GANCICLOVIR
     Indication: Antiviral treatment
     Route: 065

REACTIONS (10)
  - Disease recurrence [Unknown]
  - Drug ineffective [Unknown]
  - Hepatic function abnormal [Unknown]
  - Oral candidiasis [Unknown]
  - Pneumonia [Unknown]
  - Cytomegalovirus infection [Unknown]
  - Splenomegaly [Unknown]
  - Gene mutation [Unknown]
  - Cholestasis [Unknown]
  - Chronic hepatitis [Unknown]
